FAERS Safety Report 10617935 (Version 1)
Quarter: 2014Q4

REPORT INFORMATION
  Report Type: Spontaneous
  Country: US (occurrence: US)
  Receive Date: 20141201
  Receipt Date: 20141201
  Transmission Date: 20150529
  Serious: No
  Sender: FDA-Public Use
  Company Number: US-ASTRAZENECA-2014SE90528

PATIENT
  Age: 907 Month
  Sex: Male
  Weight: 65.8 kg

DRUGS (3)
  1. SEROQUEL [Suspect]
     Active Substance: QUETIAPINE FUMARATE
     Indication: SCHIZOPHRENIA
     Dosage: AT NIGHT
     Route: 048
     Dates: start: 201410, end: 201410
  2. SEROQUEL [Suspect]
     Active Substance: QUETIAPINE FUMARATE
     Indication: SCHIZOPHRENIA
     Route: 048
     Dates: start: 201410
  3. LISINOPRIL. [Suspect]
     Active Substance: LISINOPRIL
     Indication: HYPERTENSION
     Route: 048

REACTIONS (7)
  - Hallucination, auditory [Unknown]
  - Drug intolerance [Unknown]
  - Anxiety [Unknown]
  - Eye colour change [Unknown]
  - Psychotic disorder [Unknown]
  - Muscle twitching [Unknown]
  - Insomnia [Unknown]

NARRATIVE: CASE EVENT DATE: 201410
